FAERS Safety Report 10499526 (Version 3)
Quarter: 2017Q2

REPORT INFORMATION
  Report Type: Spontaneous
  Country: US (occurrence: US)
  Receive Date: 20141006
  Receipt Date: 20170428
  Transmission Date: 20170829
  Serious: Yes (Other)
  Sender: FDA-Public Use
  Company Number: US-AMGEN INC.-USASP2014035067

PATIENT
  Age: 80 Year
  Sex: Female

DRUGS (1)
  1. PROLIA [Suspect]
     Active Substance: DENOSUMAB
     Indication: PRODUCT USED FOR UNKNOWN INDICATION
     Dosage: UNK UNK, Q6MO
     Route: 065
     Dates: start: 20110803

REACTIONS (26)
  - Pelvic fracture [Unknown]
  - Malaise [Unknown]
  - Scratch [Unknown]
  - Jaw disorder [Unknown]
  - Tooth infection [Unknown]
  - Infection susceptibility increased [Not Recovered/Not Resolved]
  - Peripheral swelling [Unknown]
  - Arthritis [Unknown]
  - Periodontitis [Unknown]
  - Hair disorder [Unknown]
  - Stent placement [Unknown]
  - Tooth disorder [Unknown]
  - Eye irritation [Unknown]
  - Weight decreased [Unknown]
  - Infection [Unknown]
  - Oral disorder [Unknown]
  - Decreased appetite [Unknown]
  - Burning sensation [Unknown]
  - Impaired healing [Unknown]
  - Pain in extremity [Not Recovered/Not Resolved]
  - Decreased immune responsiveness [Unknown]
  - Lip swelling [Unknown]
  - Quality of life decreased [Unknown]
  - Dry mouth [Unknown]
  - Mouth ulceration [Unknown]
  - Laceration [Not Recovered/Not Resolved]

NARRATIVE: CASE EVENT DATE: 201110
